FAERS Safety Report 4636811-7 (Version None)
Quarter: 2005Q2

REPORT INFORMATION
  Report Type: 
  Country: None (occurrence: None)
  Receive Date: 20050414
  Receipt Date: 20050404
  Transmission Date: 20051028
  Serious: Yes (Death)
  Sender: FDA-Public Use
  Company Number: 2005055179

PATIENT
  Age: 22 Year
  Sex: Male

DRUGS (4)
  1. VORICONAZOLE (VORICONAZOLE) [Suspect]
     Indication: PROPHYLAXIS
     Dosage: 200 MG B.I.D., ORAL
     Route: 048
     Dates: start: 20040701
  2. CYTARABINE [Suspect]
     Indication: LEUKAEMIA
  3. IDARUBICIN HCL [Suspect]
     Indication: LEUKAEMIA
  4. AMPHOTERICIN B [Concomitant]

REACTIONS (1)
  - FUSARIUM INFECTION [None]
